FAERS Safety Report 8617000-8 (Version None)
Quarter: 2012Q3

REPORT INFORMATION
  Report Type: 
  Country: None (occurrence: None)
  Receive Date: 20120823
  Receipt Date: 20120814
  Transmission Date: 20120928
  Serious: No
  Sender: FDA-Public Use
  Company Number: US-009507513-1208USA007886

PATIENT

DRUGS (2)
  1. IMPLANON [Suspect]
     Indication: CONTRACEPTION
     Dosage: 1 DF, FOR 3 YEARS
     Route: 059
     Dates: start: 20120430
  2. HYDROCHLOROTHIAZIDE [Concomitant]

REACTIONS (1)
  - MENORRHAGIA [None]
